FAERS Safety Report 6248344-5 (Version None)
Quarter: 2009Q2

REPORT INFORMATION
  Report Type: 
  Country: None (occurrence: None)
  Receive Date: 20090629
  Receipt Date: 20090623
  Transmission Date: 20091009
  Serious: Yes (Death, Hospitalization, Other)
  Sender: FDA-Public Use
  Company Number: PHEH2008US06171

PATIENT
  Sex: Male

DRUGS (3)
  1. ZOMETA [Suspect]
     Dosage: UNK
     Dates: end: 20081119
  2. RADIATION THERAPY [Concomitant]
     Dosage: UNK
     Dates: start: 20081115
  3. CHEMOTHERAPEUTICS NOS [Concomitant]

REACTIONS (21)
  - ANAEMIA [None]
  - ANXIETY [None]
  - ATRIAL FIBRILLATION [None]
  - BACK PAIN [None]
  - CARDIAC FAILURE CONGESTIVE [None]
  - CHRONIC OBSTRUCTIVE PULMONARY DISEASE [None]
  - DEATH [None]
  - DEFORMITY [None]
  - DYSPHAGIA [None]
  - EMOTIONAL DISTRESS [None]
  - FAILURE TO THRIVE [None]
  - GAIT DISTURBANCE [None]
  - INFECTION [None]
  - METASTASES TO BONE [None]
  - METASTASES TO LUNG [None]
  - OSTEONECROSIS [None]
  - PAIN [None]
  - PHYSICAL DISABILITY [None]
  - PROSTATIC SPECIFIC ANTIGEN INCREASED [None]
  - RENAL FAILURE [None]
  - SPINAL CORD COMPRESSION [None]
